FAERS Safety Report 7082832-7 (Version None)
Quarter: 2010Q4

REPORT INFORMATION
  Report Type: 
  Country: None (occurrence: None)
  Receive Date: 20101104
  Receipt Date: 20091028
  Transmission Date: 20110411
  Serious: No
  Sender: FDA-Public Use
  Company Number: A0829327A

PATIENT
  Age: 42 Year
  Sex: Male
  Weight: 92 kg

DRUGS (1)
  1. VERDESO [Suspect]
     Indication: ECZEMA
     Dosage: 0PCT PER DAY
     Route: 061
     Dates: start: 20091019, end: 20091028

REACTIONS (2)
  - APPLICATION SITE ERYTHEMA [None]
  - INAPPROPRIATE SCHEDULE OF DRUG ADMINISTRATION [None]
